FAERS Safety Report 10075928 (Version 1)
Quarter: 2014Q2

REPORT INFORMATION
  Report Type: Spontaneous
  Country: US (occurrence: None)
  Receive Date: 20140411
  Receipt Date: 20140411
  Transmission Date: 20141212
  Serious: Yes (Other)
  Sender: FDA-Public Use
  Company Number: None

PATIENT
  Age: 61 Year
  Sex: Male

DRUGS (3)
  1. CHANTIX [Suspect]
     Indication: SMOKING CESSATION THERAPY
     Dates: start: 20140323, end: 20140407
  2. ALTENOLOL [Concomitant]
  3. ENALAPRIL [Suspect]

REACTIONS (6)
  - Agitation [None]
  - Aggression [None]
  - Erythema [None]
  - Vision blurred [None]
  - Disorientation [None]
  - Gastrointestinal disorder [None]
